FAERS Safety Report 7828867-5 (Version None)
Quarter: 2011Q4

REPORT INFORMATION
  Report Type: 
  Country: None (occurrence: None)
  Receive Date: 20111020
  Receipt Date: 20111010
  Transmission Date: 20120403
  Serious: Yes (Hospitalization)
  Sender: FDA-Public Use
  Company Number: PHHO2011US16306

PATIENT
  Sex: Female

DRUGS (4)
  1. MYCOPHENOLATE MOFETIL (CELLCEPT) [Concomitant]
     Indication: RENAL TRANSPLANT
     Dosage: 2000 MG, QD
     Route: 048
     Dates: start: 20070427
  2. NEORAL [Suspect]
     Dosage: 150 MG, QD
     Route: 048
     Dates: start: 20110916
  3. PREDNISONE [Suspect]
     Dosage: 5 MG, QD
     Dates: start: 20061116
  4. NEORAL [Suspect]
     Indication: RENAL TRANSPLANT
     Dosage: 175 MG, QD
     Route: 048
     Dates: start: 20060521

REACTIONS (1)
  - RENAL FAILURE ACUTE [None]
